FAERS Safety Report 6067354-4 (Version None)
Quarter: 2009Q1

REPORT INFORMATION
  Report Type: 
  Country: None (occurrence: None)
  Receive Date: 20090204
  Receipt Date: 20090204
  Transmission Date: 20090719
  Serious: Yes (Other)
  Sender: FDA-Public Use
  Company Number: None

PATIENT
  Age: 5 Year
  Sex: Female
  Weight: 23 kg

DRUGS (1)
  1. LAMOTRIGINE [Suspect]
     Indication: EPILEPSY
     Dosage: 20 MG AM/ 25 MG PM TWICE A DAY BY MOUTH
     Route: 048
     Dates: start: 20081101, end: 20090203

REACTIONS (1)
  - DRUG ERUPTION [None]
